FAERS Safety Report 17281567 (Version 1)
Quarter: 2020Q1

REPORT INFORMATION
  Report Type: Spontaneous
  Country: US (occurrence: US)
  Receive Date: 20191227
  Receipt Date: 20191227
  Transmission Date: 20200409
  Serious: Yes (Other)
  Sender: FDA-Public Use
  Company Number: None

PATIENT
  Age: 84 Year
  Sex: Female
  Weight: 70.31 kg

DRUGS (20)
  1. LEVOTHYROXINE. [Concomitant]
     Active Substance: LEVOTHYROXINE
  2. FOLATE [Concomitant]
     Active Substance: FOLATE SODIUM
  3. PROBIOTIC [Concomitant]
     Active Substance: PROBIOTICS NOS
  4. GLUCOSAMINE [Concomitant]
     Active Substance: GLUCOSAMINE
  5. MELATONIN [Concomitant]
     Active Substance: MELATONIN
  6. LECITHIN [Concomitant]
     Active Substance: LECITHIN
  7. VITAMIN C, E, D, GRAPE [Concomitant]
  8. BIOTIN [Concomitant]
     Active Substance: BIOTIN
  9. IRON [Concomitant]
     Active Substance: IRON
  10. COQ10 [Concomitant]
     Active Substance: UBIDECARENONE
  11. OMEPRAZOLE. [Concomitant]
     Active Substance: OMEPRAZOLE
  12. DOXYCYCLINE HYCLATE 100MG [Suspect]
     Active Substance: DOXYCYCLINE HYCLATE
     Indication: PNEUMONIA
     Dosage: ?          QUANTITY:1 DF DOSAGE FORM;?
     Route: 048
     Dates: start: 20191209, end: 20191210
  13. TUMERIC [Concomitant]
     Active Substance: HERBALS\TURMERIC
  14. SELENIUM [Concomitant]
     Active Substance: SELENIUM
  15. DOXYCYCLINE HYCLATE 100MG [Suspect]
     Active Substance: DOXYCYCLINE HYCLATE
     Indication: COUGH
     Dosage: ?          QUANTITY:1 DF DOSAGE FORM;?
     Route: 048
     Dates: start: 20191209, end: 20191210
  16. ATORVASTATIN [Concomitant]
     Active Substance: ATORVASTATIN
  17. MAGNESIUM [Concomitant]
     Active Substance: MAGNESIUM
  18. FLAX OIL [Concomitant]
  19. ASPIRIN. [Concomitant]
     Active Substance: ASPIRIN
  20. LISINOPRIL. [Concomitant]
     Active Substance: LISINOPRIL

REACTIONS (1)
  - Vomiting [None]

NARRATIVE: CASE EVENT DATE: 20191209
